FAERS Safety Report 5347347-2 (Version None)
Quarter: 2007Q2

REPORT INFORMATION
  Report Type: 
  Country: None (occurrence: None)
  Receive Date: 20070606
  Receipt Date: 20070525
  Transmission Date: 20071010
  Serious: Yes (Death, Life-Threatening, Hospitalization, Other)
  Sender: FDA-Public Use
  Company Number: GB-JNJFOC-20070506791

PATIENT
  Sex: Male
  Weight: 63 kg

DRUGS (5)
  1. REMICADE [Suspect]
     Indication: RHEUMATOID ARTHRITIS
     Route: 042
  2. METHOTREXATE SODIUM [Concomitant]
  3. CO-PROXAMOL [Concomitant]
  4. LANSOPRAZOLE [Concomitant]
  5. NABUMETONE [Concomitant]

REACTIONS (1)
  - LUNG CANCER METASTATIC [None]
